FAERS Safety Report 12698017 (Version 2)
Quarter: 2016Q4

REPORT INFORMATION
  Report Type: Spontaneous
  Country: US (occurrence: US)
  Receive Date: 20160830
  Receipt Date: 20161025
  Transmission Date: 20170207
  Serious: No
  Sender: FDA-Public Use
  Company Number: US-JNJFOC-20160706911

PATIENT
  Age: 25 Year
  Sex: Male
  Weight: 91.17 kg

DRUGS (1)
  1. RISPERDAL CONSTA [Suspect]
     Active Substance: RISPERIDONE
     Indication: SCHIZOPHRENIA
     Route: 030

REACTIONS (3)
  - Off label use [Unknown]
  - Wrong technique in product usage process [Unknown]
  - Complication associated with device [Unknown]

NARRATIVE: CASE EVENT DATE: 20160707
